FAERS Safety Report 19988840 (Version 2)
Quarter: 2021Q4

REPORT INFORMATION
  Report Type: Report from Study
  Country: US (occurrence: US)
  Receive Date: 20211024
  Receipt Date: 20211125
  Transmission Date: 20220303
  Serious: Yes (Hospitalization, Other)
  Sender: FDA-Public Use
  Company Number: US-ABBVIE-21K-163-4132787-00

PATIENT
  Sex: Male

DRUGS (1)
  1. IMBRUVICA [Suspect]
     Active Substance: IBRUTINIB
     Indication: Chronic lymphocytic leukaemia
     Route: 048
     Dates: start: 202108

REACTIONS (5)
  - Hip fracture [Unknown]
  - Neoplasm malignant [Unknown]
  - Fall [Unknown]
  - Unevaluable event [Recovering/Resolving]
  - Full blood count abnormal [Recovering/Resolving]
